FAERS Safety Report 11418635 (Version 2)
Quarter: 2015Q3

REPORT INFORMATION
  Report Type: Spontaneous
  Country: AR (occurrence: AR)
  Receive Date: 20150826
  Receipt Date: 20150911
  Transmission Date: 20151125
  Serious: Yes (Other)
  Sender: FDA-Public Use
  Company Number: AR-AMGEN-ARGSP2015085261

PATIENT
  Age: 58 Year
  Sex: Female

DRUGS (3)
  1. FOLIC ACID. [Concomitant]
     Active Substance: FOLIC ACID
     Dosage: UNK
     Dates: start: 2013
  2. ENBREL [Suspect]
     Active Substance: ETANERCEPT
     Indication: RHEUMATOID ARTHRITIS
     Dosage: 50 MG, WEEKLY
     Route: 065
     Dates: start: 20150224
  3. ARTRAIT                            /00113801/ [Concomitant]
     Active Substance: METHOTREXATE SODIUM
     Dosage: UNK
     Dates: start: 2013

REACTIONS (6)
  - Accident [Recovered/Resolved]
  - Fall [Recovered/Resolved]
  - Animal bite [Recovered/Resolved]
  - Influenza [Recovered/Resolved]
  - Back injury [Recovering/Resolving]
  - Abasia [Recovered/Resolved]

NARRATIVE: CASE EVENT DATE: 201507
